FAERS Safety Report 25961965 (Version 1)
Quarter: 2025Q4

REPORT INFORMATION
  Report Type: Spontaneous
  Country: EU (occurrence: EU)
  Receive Date: 20251027
  Receipt Date: 20251027
  Transmission Date: 20260117
  Serious: Yes (Other)
  Sender: MYLAN
  Company Number: EU-MYLANLABS-2025M1090098

PATIENT
  Age: 52 Year
  Sex: Male

DRUGS (3)
  1. XANAX [Suspect]
     Active Substance: ALPRAZOLAM
     Indication: Product use issue
     Dosage: UNK
  2. TRAMADOL HYDROCHLORIDE [Concomitant]
     Active Substance: TRAMADOL HYDROCHLORIDE
     Indication: Product use issue
     Dosage: UNK
  3. COCAINE [Concomitant]
     Active Substance: COCAINE

REACTIONS (2)
  - Drug abuse [Unknown]
  - Prescription drug used without a prescription [Unknown]
